FAERS Safety Report 16798953 (Version 9)
Quarter: 2019Q4

REPORT INFORMATION
  Report Type: Spontaneous
  Country: AR (occurrence: AR)
  Receive Date: 20190912
  Receipt Date: 20191217
  Transmission Date: 20200122
  Serious: Yes (Other)
  Sender: FDA-Public Use
  Company Number: AR-MYLANLABS-2019M1075632

PATIENT
  Age: 29 Year
  Sex: Male

DRUGS (4)
  1. TESTOSTERONE. [Concomitant]
     Active Substance: TESTOSTERONE
     Indication: PRODUCT USED FOR UNKNOWN INDICATION
     Dosage: UNK
  2. LAPENAX [Suspect]
     Active Substance: CLOZAPINE
     Indication: PSYCHOTIC DISORDER
     Dosage: UNK
     Dates: start: 20190815
  3. T4 [Concomitant]
     Active Substance: LEVOTHYROXINE
     Dosage: UNK
  4. HYDROTHIAZIDE [Concomitant]
     Dosage: UNK

REACTIONS (10)
  - Mean cell volume decreased [Recovered/Resolved]
  - Off label use [Unknown]
  - Eosinophil count decreased [Not Recovered/Not Resolved]
  - Monocyte count increased [Not Recovered/Not Resolved]
  - Haematocrit decreased [Recovering/Resolving]
  - Neutropenia [Recovered/Resolved]
  - Red cell distribution width decreased [Recovering/Resolving]
  - Mean cell haemoglobin concentration increased [Recovering/Resolving]
  - Lymphocyte count increased [Recovering/Resolving]
  - Leukocytosis [Recovered/Resolved]

NARRATIVE: CASE EVENT DATE: 20190823
